FAERS Safety Report 8494130-5 (Version None)
Quarter: 2012Q3

REPORT INFORMATION
  Report Type: 
  Country: None (occurrence: None)
  Receive Date: 20120709
  Receipt Date: 20120703
  Transmission Date: 20120928
  Serious: Yes (Hospitalization)
  Sender: FDA-Public Use
  Company Number: US-AMGEN-USASP2012041284

PATIENT
  Age: 72 Year
  Sex: Female

DRUGS (1)
  1. ENBREL [Suspect]
     Indication: RHEUMATOID ARTHRITIS
     Dosage: 50 MG, QWK
     Dates: start: 20110215, end: 20120612

REACTIONS (7)
  - FATIGUE [None]
  - WEIGHT DECREASED [None]
  - VISION BLURRED [None]
  - PALLOR [None]
  - HAEMOGLOBIN DECREASED [None]
  - DIZZINESS [None]
  - FEELING HOT [None]
